FAERS Safety Report 8820882 (Version 1)
Quarter: 2012Q4

REPORT INFORMATION
  Report Type: 
  Country: JP (occurrence: JP)
  Receive Date: 20121002
  Receipt Date: 20121002
  Transmission Date: 20130627
  Serious: Yes (Other)
  Sender: FDA-Public Use
  Company Number: JP-PFIZER INC-2012235187

PATIENT
  Age: 76 Year

DRUGS (4)
  1. DALACIN [Suspect]
     Indication: LUNG ABSCESS
     Dosage: 900 mg, 1x/day
     Dates: start: 20120911, end: 20120921
  2. CRAVIT [Concomitant]
     Route: 041
  3. ABILIFY [Concomitant]
     Dosage: UNK
  4. MAXIPIME [Concomitant]

REACTIONS (2)
  - Haemoglobin decreased [Not Recovered/Not Resolved]
  - Platelet count decreased [Not Recovered/Not Resolved]
